FAERS Safety Report 13892475 (Version 1)
Quarter: 2017Q3

REPORT INFORMATION
  Report Type: Spontaneous
  Country: US (occurrence: US)
  Receive Date: 20170822
  Receipt Date: 20170822
  Transmission Date: 20171127
  Serious: Yes (Life-Threatening, Hospitalization, Other)
  Sender: FDA-Public Use
  Company Number: US-ROCHE-750884

PATIENT
  Age: 54 Year
  Sex: Female
  Weight: 49.2 kg

DRUGS (4)
  1. AZULFIDINE [Concomitant]
     Active Substance: SULFASALAZINE
     Route: 048
  2. ACTEMRA [Suspect]
     Active Substance: TOCILIZUMAB
     Indication: RHEUMATOID ARTHRITIS
     Dosage: FORM: INFUSION; DOSE: 196 (TOTAL MONTHLY DOSE) MG
     Route: 042
  3. ACTEMRA [Suspect]
     Active Substance: TOCILIZUMAB
     Route: 042
  4. CELEBREX [Concomitant]
     Active Substance: CELECOXIB
     Route: 048

REACTIONS (5)
  - Paraesthesia [Recovered/Resolved]
  - Hypotension [Recovered/Resolved]
  - Anaphylactic reaction [Recovered/Resolved]
  - Hyperhidrosis [Recovered/Resolved]
  - Dyspnoea [Recovered/Resolved]

NARRATIVE: CASE EVENT DATE: 20101221
